FAERS Safety Report 8690502 (Version 3)
Quarter: 2013Q2

REPORT INFORMATION
  Report Type: Spontaneous
  Country: US (occurrence: US)
  Receive Date: 20120727
  Receipt Date: 20130423
  Transmission Date: 20140414
  Serious: No
  Sender: FDA-Public Use
  Company Number: US-ASTRAZENECA-2012SE22548

PATIENT
  Age: 36 Year
  Sex: Female

DRUGS (3)
  1. SEROQUEL [Suspect]
     Indication: BIPOLAR DISORDER
     Route: 048
  2. SEROQUEL [Suspect]
     Indication: BIPOLAR DISORDER
     Route: 048
  3. SEROQUEL [Suspect]
     Indication: BIPOLAR DISORDER
     Dosage: CUT TABLET INTO 1/4 TABLETS
     Route: 048

REACTIONS (7)
  - Adverse drug reaction [Unknown]
  - Anxiety [Unknown]
  - Nervousness [Unknown]
  - Malaise [Unknown]
  - Pain [Unknown]
  - Expired drug administered [Unknown]
  - Intentional drug misuse [Unknown]
